FAERS Safety Report 9068698 (Version 1)
Quarter: 2013Q1

REPORT INFORMATION
  Report Type: Spontaneous
  Country: US (occurrence: US)
  Receive Date: 20130215
  Receipt Date: 20130215
  Transmission Date: 20140127
  Serious: Yes (Hospitalization, Other)
  Sender: FDA-Public Use
  Company Number: US-009507513-2011SP059052

PATIENT
  Age: 57 None
  Sex: Male
  Weight: 95.71 kg

DRUGS (9)
  1. RIBAVIRIN [Suspect]
     Dosage: 1200 MG, QD
     Route: 048
  2. VICTRELIS [Suspect]
     Dosage: 200 MG, TID
     Route: 048
  3. PEG-INTRON [Suspect]
     Dosage: 150 ?G, UNKNOWN
     Route: 058
  4. AMLODIPINE [Concomitant]
     Dosage: 5 MG, UNKNOWN
     Route: 048
  5. LISINOPRIL [Concomitant]
     Dosage: 10 MG, UNKNOWN
     Route: 048
  6. VITAMINS (UNSPECIFIED) [Concomitant]
     Dosage: TAB
     Route: 048
  7. GOODYS [Concomitant]
     Dosage: BC HEADACHE POWDER
     Route: 065
  8. OMEGA-3 MARINE TRIGLYCERIDES [Concomitant]
     Dosage: UNK UNK, UNKNOWN
     Route: 048
  9. EPOETIN ALFA [Concomitant]
     Dosage: INJECTION
     Route: 058

REACTIONS (5)
  - Cerebrovascular accident [Unknown]
  - Anaemia [Unknown]
  - Eye haemorrhage [Unknown]
  - Papilloedema [Unknown]
  - Loss of consciousness [Unknown]
